FAERS Safety Report 19488476 (Version 1)
Quarter: 2021Q3

REPORT INFORMATION
  Report Type: Report from Study
  Country: US (occurrence: US)
  Receive Date: 20210702
  Receipt Date: 20210702
  Transmission Date: 20211014
  Serious: Yes (Hospitalization, Other)
  Sender: FDA-Public Use
  Company Number: US-DSJP-DSU-2021-120377

PATIENT
  Age: 49 Year
  Sex: Female
  Weight: 56.4 kg

DRUGS (1)
  1. TRASTUZUMAB DERUXTECAN. [Suspect]
     Active Substance: TRASTUZUMAB DERUXTECAN
     Indication: NEOPLASM
     Dosage: 118.2 ML, ONCE EVERY 3 WK
     Route: 042
     Dates: start: 20201229, end: 20201229

REACTIONS (3)
  - Urinary tract infection [Not Recovered/Not Resolved]
  - Anaemia [Not Recovered/Not Resolved]
  - Arthritis infective [Not Recovered/Not Resolved]

NARRATIVE: CASE EVENT DATE: 20210104
